FAERS Safety Report 12207993 (Version 2)
Quarter: 2016Q2

REPORT INFORMATION
  Report Type: Report from Study
  Country: US (occurrence: US)
  Receive Date: 20160324
  Receipt Date: 20160407
  Transmission Date: 20160815
  Serious: Yes (Death)
  Sender: FDA-Public Use
  Company Number: US-B.I. PHARMACEUTICALS,INC./RIDGEFIELD-2015-BI-47798BP

PATIENT
  Sex: Female

DRUGS (2)
  1. OFEV [Suspect]
     Active Substance: NINTEDANIB
     Indication: IDIOPATHIC PULMONARY FIBROSIS
     Dosage: 100 MG
     Route: 048
     Dates: start: 20150707
  2. OFEV [Suspect]
     Active Substance: NINTEDANIB
     Dosage: 200 MG
     Route: 048

REACTIONS (10)
  - Idiopathic pulmonary fibrosis [Fatal]
  - Rash [Unknown]
  - Fatigue [Unknown]
  - Emotional disorder [Unknown]
  - Dizziness [Unknown]
  - Dyspnoea [Unknown]
  - Dry mouth [Unknown]
  - Insomnia [Unknown]
  - Death of relative [Unknown]
  - Faeces soft [Unknown]
